FAERS Safety Report 17616215 (Version 1)
Quarter: 2020Q2

REPORT INFORMATION
  Report Type: Spontaneous
  Country: FR (occurrence: FR)
  Receive Date: 20200402
  Receipt Date: 20200402
  Transmission Date: 20200713
  Serious: Yes (Hospitalization)
  Sender: FDA-Public Use
  Company Number: FR-TEVA-2020-FR-1217200

PATIENT
  Age: 64 Year
  Sex: Male
  Weight: 67.5 kg

DRUGS (8)
  1. FLUOROURACILE [Suspect]
     Active Substance: FLUOROURACIL
     Indication: SQUAMOUS CELL CARCINOMA
     Route: 042
     Dates: start: 20190423, end: 20190513
  2. INEXIUM [Concomitant]
     Active Substance: ESOMEPRAZOLE
  3. INNOHEP [Concomitant]
     Active Substance: TINZAPARIN SODIUM
  4. PARACETAMOL [Concomitant]
     Active Substance: ACETAMINOPHEN
  5. CARBOPLATINE ACCORD 10 MG/ML, SOLUTION POUR PERFUSION [Suspect]
     Active Substance: CARBOPLATIN
     Indication: SQUAMOUS CELL CARCINOMA
     Route: 042
     Dates: start: 20190401, end: 20190513
  6. DUROGESIC [Concomitant]
     Active Substance: FENTANYL
  7. AUGMENTIN [Concomitant]
     Active Substance: AMOXICILLIN\CLAVULANATE POTASSIUM
  8. ATORVASTATINE [Concomitant]
     Active Substance: ATORVASTATIN

REACTIONS (2)
  - Mucosal inflammation [Recovering/Resolving]
  - Vomiting [Recovering/Resolving]

NARRATIVE: CASE EVENT DATE: 201905
